FAERS Safety Report 10727218 (Version 1)
Quarter: 2015Q1

REPORT INFORMATION
  Report Type: Spontaneous
  Country: US (occurrence: US)
  Receive Date: 20150121
  Receipt Date: 20150121
  Transmission Date: 20150721
  Serious: Yes (Hospitalization)
  Sender: FDA-Public Use
  Company Number: US-MERCK-1501USA006454

PATIENT
  Age: 76 Year
  Sex: Female

DRUGS (4)
  1. KEYTRUDA [Suspect]
     Active Substance: PEMBROLIZUMAB
     Dosage: 50 MG, ONCE (1 INFUSION EVERY 14 DAYS)
     Route: 042
     Dates: start: 20150101
  2. KEYTRUDA [Suspect]
     Active Substance: PEMBROLIZUMAB
     Indication: PANCREATIC CARCINOMA
     Dosage: 150 MG, ONCE (1 INFUSION EVERY 14 DAYS)
     Route: 042
     Dates: start: 20141204
  3. MOZOBIL [Suspect]
     Active Substance: PLERIXAFOR
     Dosage: UNK
  4. KEYTRUDA [Suspect]
     Active Substance: PEMBROLIZUMAB
     Dosage: 100 MG, ONCE (1 INFUSION EVERY 14 DAYS)
     Route: 042
     Dates: start: 20141218

REACTIONS (6)
  - Therapeutic response unexpected [Unknown]
  - Wrong technique in drug usage process [Unknown]
  - Wrong technique in drug usage process [Unknown]
  - Wrong technique in drug usage process [Unknown]
  - Adverse event [Unknown]
  - Cancer in remission [Unknown]

NARRATIVE: CASE EVENT DATE: 20141204
